FAERS Safety Report 6583939-0 (Version None)
Quarter: 2010Q1

REPORT INFORMATION
  Report Type: 
  Country: None (occurrence: None)
  Receive Date: 20100216
  Receipt Date: 20091203
  Transmission Date: 20100710
  Serious: No
  Sender: FDA-Public Use
  Company Number: US-ABBOTT-09P-163-0612137-00

PATIENT
  Sex: Male
  Weight: 99.88 kg

DRUGS (1)
  1. SIMCOR [Suspect]
     Indication: BLOOD CHOLESTEROL INCREASED
     Dosage: 1000/20 MG

REACTIONS (3)
  - ERYTHEMA [None]
  - FLUSHING [None]
  - GENERALISED ERYTHEMA [None]
